FAERS Safety Report 7945030-8 (Version None)
Quarter: 2011Q4

REPORT INFORMATION
  Report Type: 
  Country: None (occurrence: None)
  Receive Date: 20111129
  Receipt Date: 20110509
  Transmission Date: 20120403
  Serious: No
  Sender: FDA-Public Use
  Company Number: US-MYLANLABS-2011S1009694

PATIENT
  Age: 53 Year
  Sex: Male

DRUGS (2)
  1. ALLOPURINOL TAB [Suspect]
     Indication: GOUT
     Route: 048
     Dates: start: 20050101
  2. ALLOPURINOL TAB [Suspect]
     Route: 048
     Dates: start: 20050101

REACTIONS (2)
  - DIARRHOEA [None]
  - REACTION TO DRUG EXCIPIENTS [None]
